FAERS Safety Report 5840446-8 (Version None)
Quarter: 2008Q3

REPORT INFORMATION
  Report Type: 
  Country: None (occurrence: None)
  Receive Date: 20080807
  Receipt Date: 20080804
  Transmission Date: 20090109
  Serious: Yes (Other)
  Sender: FDA-Public Use
  Company Number: 031730

PATIENT
  Age: 14 Year
  Sex: Female

DRUGS (2)
  1. CLARAVIS [Suspect]
     Indication: ACNE
     Dosage: 60 MG,QD; ORAL
     Route: 048
     Dates: start: 20080726, end: 20080730
  2. EFFEXOR XR [Concomitant]

REACTIONS (3)
  - HALLUCINATION [None]
  - HEADACHE [None]
  - SWELLING FACE [None]
